FAERS Safety Report 7692743-1 (Version None)
Quarter: 2011Q3

REPORT INFORMATION
  Report Type: 
  Country: None (occurrence: None)
  Receive Date: 20110819
  Receipt Date: 20110809
  Transmission Date: 20111222
  Serious: Yes (Hospitalization)
  Sender: FDA-Public Use
  Company Number: BR-US-EMD SERONO, INC.-7010379

PATIENT
  Sex: Male

DRUGS (7)
  1. MANTIDAN [Concomitant]
  2. REBIF [Suspect]
     Indication: RELAPSING-REMITTING MULTIPLE SCLEROSIS
     Route: 058
     Dates: start: 20060801
  3. DIGOXIN [Concomitant]
  4. REBIF [Suspect]
     Route: 058
     Dates: start: 20070101
  5. BACLOFEN [Concomitant]
  6. ENALAPRIL MALEATE [Concomitant]
  7. CLOPIDOGREL [Concomitant]

REACTIONS (4)
  - CARDIAC DISORDER [None]
  - FATIGUE [None]
  - TRANSIENT ISCHAEMIC ATTACK [None]
  - ARRHYTHMIA [None]
